FAERS Safety Report 25859004 (Version 1)
Quarter: 2025Q3

REPORT INFORMATION
  Report Type: Spontaneous
  Country: KR (occurrence: KR)
  Receive Date: 20250929
  Receipt Date: 20250929
  Transmission Date: 20251020
  Serious: Yes (Other)
  Sender: MYLAN
  Company Number: KR-MYLANLABS-2025M1081732

PATIENT
  Sex: Female
  Weight: 70 kg

DRUGS (12)
  1. LYRICA [Suspect]
     Active Substance: PREGABALIN
     Indication: Gastroenteritis
     Dosage: 1 DOSAGE FORM, BID
     Dates: start: 20220220, end: 20220220
  2. LYRICA [Suspect]
     Active Substance: PREGABALIN
     Indication: Colitis
     Dosage: 1 DOSAGE FORM, BID
     Route: 065
     Dates: start: 20220220, end: 20220220
  3. LYRICA [Suspect]
     Active Substance: PREGABALIN
     Dosage: 1 DOSAGE FORM, BID
     Route: 065
     Dates: start: 20220220, end: 20220220
  4. LYRICA [Suspect]
     Active Substance: PREGABALIN
     Dosage: 1 DOSAGE FORM, BID
     Dates: start: 20220220, end: 20220220
  5. KETOROLAC TROMETHAMINE [Suspect]
     Active Substance: KETOROLAC TROMETHAMINE
     Indication: Gastroenteritis
     Dosage: 1 DOSAGE FORM, TID
     Dates: start: 20220220, end: 20220220
  6. KETOROLAC TROMETHAMINE [Suspect]
     Active Substance: KETOROLAC TROMETHAMINE
     Indication: Colitis
     Dosage: 1 DOSAGE FORM, TID
     Route: 065
     Dates: start: 20220220, end: 20220220
  7. KETOROLAC TROMETHAMINE [Suspect]
     Active Substance: KETOROLAC TROMETHAMINE
     Dosage: 1 DOSAGE FORM, TID
     Route: 065
     Dates: start: 20220220, end: 20220220
  8. KETOROLAC TROMETHAMINE [Suspect]
     Active Substance: KETOROLAC TROMETHAMINE
     Dosage: 1 DOSAGE FORM, TID
     Dates: start: 20220220, end: 20220220
  9. ACETAMINOPHEN\TRAMADOL HYDROCHLORIDE [Suspect]
     Active Substance: ACETAMINOPHEN\TRAMADOL HYDROCHLORIDE
     Indication: Gastroenteritis
     Dosage: 1 DOSAGE FORM, BID
     Dates: start: 20220220, end: 20220220
  10. ACETAMINOPHEN\TRAMADOL HYDROCHLORIDE [Suspect]
     Active Substance: ACETAMINOPHEN\TRAMADOL HYDROCHLORIDE
     Indication: Colitis
     Dosage: 1 DOSAGE FORM, BID
     Route: 065
     Dates: start: 20220220, end: 20220220
  11. ACETAMINOPHEN\TRAMADOL HYDROCHLORIDE [Suspect]
     Active Substance: ACETAMINOPHEN\TRAMADOL HYDROCHLORIDE
     Dosage: 1 DOSAGE FORM, BID
     Route: 065
     Dates: start: 20220220, end: 20220220
  12. ACETAMINOPHEN\TRAMADOL HYDROCHLORIDE [Suspect]
     Active Substance: ACETAMINOPHEN\TRAMADOL HYDROCHLORIDE
     Dosage: 1 DOSAGE FORM, BID
     Dates: start: 20220220, end: 20220220

REACTIONS (5)
  - Nausea [Recovered/Resolved]
  - Vomiting [Recovered/Resolved]
  - Hypotension [Recovered/Resolved]
  - Dizziness [Recovered/Resolved]
  - Product use in unapproved indication [Unknown]

NARRATIVE: CASE EVENT DATE: 20220220
